FAERS Safety Report 24266401 (Version 2)
Quarter: 2025Q1

REPORT INFORMATION
  Report Type: Report from Study
  Country: US (occurrence: US)
  Receive Date: 20240830
  Receipt Date: 20250101
  Transmission Date: 20250409
  Serious: Yes (Hospitalization)
  Sender: ABBVIE
  Company Number: US-ABBVIE-5898859

PATIENT
  Sex: Female

DRUGS (1)
  1. SKYRIZI [Suspect]
     Active Substance: RISANKIZUMAB-RZAA
     Indication: Psoriasis
     Route: 058
     Dates: start: 20220701

REACTIONS (4)
  - Gastrointestinal disorder [Recovered/Resolved]
  - Rib fracture [Recovering/Resolving]
  - Psoriasis [Not Recovered/Not Resolved]
  - Road traffic accident [Unknown]
